FAERS Safety Report 8010976-1 (Version None)
Quarter: 2011Q4

REPORT INFORMATION
  Report Type: 
  Country: None (occurrence: None)
  Receive Date: 20111228
  Receipt Date: 20111213
  Transmission Date: 20120403
  Serious: Yes (Other)
  Sender: FDA-Public Use
  Company Number: DE-JUTA GMBH-2011-21681

PATIENT
  Sex: Female

DRUGS (7)
  1. TRAMADOL HCL [Suspect]
     Indication: PRODUCT USED FOR UNKNOWN INDICATION
     Dosage: 100 RET.; 10 TABLETS; TOTAL AMOUNT 1000 MG
     Route: 065
     Dates: start: 20111201, end: 20111201
  2. ACETAMINOPHEN [Suspect]
     Indication: PRODUCT USED FOR UNKNOWN INDICATION
     Dosage: 7 TABLET; TOTAL AMOUNT 3500 MG
     Route: 065
     Dates: start: 20111201, end: 20111201
  3. PANTOPRAZOLE SODIUM [Suspect]
     Indication: PRODUCT USED FOR UNKNOWN INDICATION
     Dosage: 10 TABLETS; TOTAL AMOUNT 400 MG
     Route: 065
     Dates: start: 20111201, end: 20111201
  4. FERROUS SULFATE TAB [Suspect]
     Indication: PRODUCT USED FOR UNKNOWN INDICATION
     Dosage: 10 TABLETS; TOTAL AMOUNT: 500 MG
     Route: 065
     Dates: start: 20111201, end: 20111201
  5. IBUPROFEN [Suspect]
     Indication: PRODUCT USED FOR UNKNOWN INDICATION
     Dosage: 1400 AKUT, 10 TABLETS; TOTAL AMOUNT 4000 MG
     Route: 065
     Dates: start: 20111201, end: 20111201
  6. ACETAMINOPHEN [Suspect]
     Indication: PRODUCT USED FOR UNKNOWN INDICATION
     Dosage: 20 TABLETS; TOTAL AMOUNT 10000 MG
     Route: 065
     Dates: start: 20111201, end: 20111201
  7. AMITRIPTYLINE [Suspect]
     Indication: PRODUCT USED FOR UNKNOWN INDICATION
     Dosage: 25 MG; 50 TABLETS; TOTAL AMOUNT 1250 MG
     Route: 065
     Dates: start: 20111201, end: 20111201

REACTIONS (4)
  - HYPOTONIA [None]
  - SUICIDE ATTEMPT [None]
  - SOMNOLENCE [None]
  - GASTROINTESTINAL SOUNDS ABNORMAL [None]
